FAERS Safety Report 13791402 (Version 1)
Quarter: 2017Q3

REPORT INFORMATION
  Report Type: Report from Study
  Country: BR (occurrence: BR)
  Receive Date: 20170725
  Receipt Date: 20170725
  Transmission Date: 20171127
  Serious: Yes (Other)
  Sender: FDA-Public Use
  Company Number: PHHY2017BR108351

PATIENT
  Sex: Male

DRUGS (1)
  1. FORASEQ [Suspect]
     Active Substance: BUDESONIDE\FORMOTEROL FUMARATE
     Indication: LUNG DISORDER
     Dosage: 1 DF (BUDESONIDE 400 UG, FORMETEROL FUMARATE 12 UG), QD
     Route: 055

REACTIONS (2)
  - Cataract [Recovering/Resolving]
  - Product use in unapproved indication [Unknown]
